FAERS Safety Report 5370068-7 (Version None)
Quarter: 2007Q2

REPORT INFORMATION
  Report Type: 
  Country: None (occurrence: None)
  Receive Date: 20070613
  Receipt Date: 20061013
  Transmission Date: 20071010
  Serious: Yes (Hospitalization)
  Sender: FDA-Public Use
  Company Number: 23100356

PATIENT
  Age: 70 Year
  Sex: Male
  Weight: 96 kg

DRUGS (12)
  1. ARGATROBAN [Suspect]
     Indication: HEPARIN-INDUCED THROMBOCYTOPENIA
     Dosage: 2 MCG/KG/MIN CONT IV
     Route: 042
     Dates: start: 20061011, end: 20061013
  2. ARGATROBAN [Suspect]
     Indication: PRE-EXISTING DISEASE
     Dosage: 2 MCG/KG/MIN CONT IV
     Route: 042
     Dates: start: 20061011, end: 20061013
  3. ASCORBIC ACID [Concomitant]
  4. REGULAR INSULIN [Concomitant]
  5. NOVOLOG [Concomitant]
  6. PREDNISONE [Concomitant]
  7. PROCRIT [Concomitant]
  8. COREG [Concomitant]
  9. IRON [Concomitant]
  10. PEPCID [Concomitant]
  11. NEURONTIN [Concomitant]
  12. NEBULIZER TREATMENTS [Concomitant]

REACTIONS (1)
  - COAGULATION TIME PROLONGED [None]
